FAERS Safety Report 4917456-8 (Version None)
Quarter: 2006Q1

REPORT INFORMATION
  Report Type: 
  Country: None (occurrence: None)
  Receive Date: 20060221
  Receipt Date: 20050920
  Transmission Date: 20060701
  Serious: Yes (Hospitalization)
  Sender: FDA-Public Use
  Company Number: US-MERCK-0509USA03086

PATIENT
  Age: 74 Year
  Sex: Male

DRUGS (7)
  1. VIOXX [Suspect]
     Route: 048
     Dates: start: 20030404, end: 20040201
  2. TYLENOL (CAPLET) [Concomitant]
     Route: 065
  3. CARDURA [Concomitant]
     Route: 065
  4. SYNTHROID [Concomitant]
     Route: 065
  5. TOPROL-XL [Concomitant]
     Route: 065
  6. PREVACID [Concomitant]
     Route: 065
  7. GLUCOTROL [Concomitant]
     Route: 065

REACTIONS (3)
  - CEREBRAL INFARCTION [None]
  - CEREBROVASCULAR ACCIDENT [None]
  - HAEMATURIA [None]
